FAERS Safety Report 9297688 (Version 1)
Quarter: 2013Q2

REPORT INFORMATION
  Report Type: Spontaneous
  Country: US (occurrence: US)
  Receive Date: 20130520
  Receipt Date: 20130520
  Transmission Date: 20140414
  Serious: No
  Sender: FDA-Public Use
  Company Number: US-PFIZER INC-2013150055

PATIENT
  Age: 12 Year
  Sex: Male

DRUGS (9)
  1. GEODON [Suspect]
     Indication: BIPOLAR DISORDER
     Dosage: 60 MG, DAILY
  2. GEODON [Suspect]
     Dosage: 40 MG, DAILY
  3. RISPERDAL [Suspect]
     Dosage: 2 MG, 2X/DAY
  4. ABILIFY [Suspect]
     Dosage: 5 MG, DAILY
  5. LAMICTAL [Suspect]
     Indication: MOOD SWINGS
     Dosage: 50 MG, DAILY
  6. LAMICTAL [Suspect]
     Dosage: 100 MG, DAILY
  7. SEROQUEL [Suspect]
     Dosage: 25 MG, UNK
  8. SEROQUEL [Suspect]
     Dosage: 50 MG, UNK
  9. STRATTERA [Concomitant]
     Indication: ATTENTION DEFICIT/HYPERACTIVITY DISORDER
     Dosage: UNK

REACTIONS (9)
  - Sedation [Unknown]
  - Weight increased [Unknown]
  - Obesity [Unknown]
  - Blood prolactin increased [Unknown]
  - Precocious puberty [Unknown]
  - Gynaecomastia [Unknown]
  - Somnolence [Unknown]
  - Activities of daily living impaired [Unknown]
  - Rash [Unknown]
